FAERS Safety Report 8359949-X (Version None)
Quarter: 2012Q2

REPORT INFORMATION
  Report Type: 
  Country: None (occurrence: None)
  Receive Date: 20120515
  Receipt Date: 20120510
  Transmission Date: 20120825
  Serious: Yes (Hospitalization)
  Sender: FDA-Public Use
  Company Number: PHHY2012DE035276

PATIENT
  Age: 77 Year
  Sex: Female
  Weight: 83 kg

DRUGS (2)
  1. EXJADE [Suspect]
     Indication: HAEMOSIDEROSIS
     Dosage: UNK UKN, UNK
     Route: 048
     Dates: start: 20120301
  2. EXJADE [Suspect]
     Indication: MYELODYSPLASTIC SYNDROME
     Dosage: 1500 MG, DAILY
     Route: 048
     Dates: start: 20120104, end: 20120206

REACTIONS (1)
  - BRONCHITIS [None]
